FAERS Safety Report 6429916-1 (Version None)
Quarter: 2009Q4

REPORT INFORMATION
  Report Type: 
  Country: None (occurrence: None)
  Receive Date: 20091106
  Receipt Date: 20091030
  Transmission Date: 20100525
  Serious: Yes (Hospitalization)
  Sender: FDA-Public Use
  Company Number: US-JNJFOC-20090900699

PATIENT
  Age: 76 Year
  Sex: Male
  Weight: 65.77 kg

DRUGS (1)
  1. LEVAQUIN [Suspect]
     Indication: PNEUMONIA
     Dosage: EVERY OTHER DAY
     Route: 065

REACTIONS (2)
  - DIARRHOEA [None]
  - DRUG TOXICITY [None]
